FAERS Safety Report 19871981 (Version 2)
Quarter: 2022Q3

REPORT INFORMATION
  Report Type: Spontaneous
  Country: FR (occurrence: FR)
  Receive Date: 20210923
  Receipt Date: 20220713
  Transmission Date: 20221027
  Serious: Yes (Other)
  Sender: FDA-Public Use
  Company Number: FR-GSKCCFEMEA-CASE-01308091_AE-49622

PATIENT

DRUGS (1)
  1. ALBUTEROL [Suspect]
     Active Substance: ALBUTEROL
     Indication: Asthma
     Dosage: 10 PUFF(S), TID, 100 ?G
     Route: 055

REACTIONS (3)
  - Asthmatic crisis [Unknown]
  - Prescribed overdose [Unknown]
  - Overdose [Unknown]
